FAERS Safety Report 8504289-9 (Version None)
Quarter: 2012Q3

REPORT INFORMATION
  Report Type: 
  Country: None (occurrence: None)
  Receive Date: 20120711
  Receipt Date: 20120525
  Transmission Date: 20120928
  Serious: No
  Sender: FDA-Public Use
  Company Number: US-BAYER-2012-053408

PATIENT
  Age: 66 Year
  Sex: Male
  Weight: 127 kg

DRUGS (4)
  1. PLAVIX [Concomitant]
  2. INSULIN [Concomitant]
     Indication: DIABETES MELLITUS
  3. ALEVE (CAPLET) [Suspect]
     Indication: ARTHRITIS
     Dosage: 2 DF, QD
     Route: 048
     Dates: start: 20070101
  4. ALEVE (CAPLET) [Suspect]
     Dosage: 2 DF, QD
     Route: 048
     Dates: start: 20120301

REACTIONS (1)
  - CONTUSION [None]
